FAERS Safety Report 19066798 (Version 2)
Quarter: 2021Q2

REPORT INFORMATION
  Report Type: Spontaneous
  Country: GB (occurrence: GB)
  Receive Date: 20210329
  Receipt Date: 20210408
  Transmission Date: 20210717
  Serious: Yes (Life-Threatening, Hospitalization, Other)
  Sender: FDA-Public Use
  Company Number: GB-BRISTOL-MYERS SQUIBB COMPANY-BMS-2021-028028

PATIENT
  Age: 8 Decade
  Sex: Male

DRUGS (6)
  1. MICONAZOLE. [Interacting]
     Active Substance: MICONAZOLE
     Indication: ORAL CANDIDIASIS
     Dosage: 24 MG/ML,12 HOURS,2 WEEK,TWICE A DAY
     Route: 061
  2. WARFARIN SODIUM. [Suspect]
     Active Substance: WARFARIN SODIUM
     Indication: PRODUCT USED FOR UNKNOWN INDICATION
     Route: 048
  3. RAMIPRIL. [Concomitant]
     Active Substance: RAMIPRIL
     Indication: PRODUCT USED FOR UNKNOWN INDICATION
     Route: 065
  4. BISOPROLOL [Concomitant]
     Active Substance: BISOPROLOL
     Indication: PRODUCT USED FOR UNKNOWN INDICATION
     Route: 065
  5. FUROSEMIDE. [Concomitant]
     Active Substance: FUROSEMIDE
     Indication: PRODUCT USED FOR UNKNOWN INDICATION
     Route: 065
  6. SIMVASTATIN. [Concomitant]
     Active Substance: SIMVASTATIN
     Indication: PRODUCT USED FOR UNKNOWN INDICATION
     Dosage: UNK (24 MG/ML), TWICE DAILY
     Route: 065

REACTIONS (4)
  - International normalised ratio increased [Recovered/Resolved]
  - Pharyngeal haematoma [Recovered/Resolved]
  - Drug interaction [Recovered/Resolved]
  - Haemoptysis [Recovered/Resolved]
